FAERS Safety Report 17257800 (Version 1)
Quarter: 2020Q1

REPORT INFORMATION
  Report Type: Spontaneous
  Country: SE (occurrence: SE)
  Receive Date: 20200110
  Receipt Date: 20200110
  Transmission Date: 20200409
  Serious: Yes (Hospitalization)
  Sender: FDA-Public Use
  Company Number: SE-MYLANLABS-2020M1002794

PATIENT
  Sex: Male

DRUGS (1)
  1. LERGIGAN (PROMETHAZINE) [Suspect]
     Active Substance: PROMETHAZINE HYDROCHLORIDE
     Indication: PRODUCT USED FOR UNKNOWN INDICATION
     Dosage: OBSERVERAT INTAG 15 ST 50 MG, UPPGER 50-100 TOTALT SETT
     Route: 048
     Dates: start: 20180316, end: 20180316

REACTIONS (7)
  - Aggression [Unknown]
  - Hallucination [Unknown]
  - Intentional overdose [Unknown]
  - Depressed level of consciousness [Unknown]
  - Fatigue [Unknown]
  - Intentional self-injury [Unknown]
  - Mydriasis [Unknown]

NARRATIVE: CASE EVENT DATE: 20180316
